FAERS Safety Report 7793476-3 (Version None)
Quarter: 2011Q4

REPORT INFORMATION
  Report Type: 
  Country: None (occurrence: None)
  Receive Date: 20111003
  Receipt Date: 20110914
  Transmission Date: 20120403
  Serious: Yes (Other)
  Sender: FDA-Public Use
  Company Number: US-SANOFI-AVENTIS-2011SA063137

PATIENT
  Sex: Female

DRUGS (5)
  1. SOLOSTAR [Suspect]
  2. AMBIEN [Concomitant]
  3. OXYCONTIN [Concomitant]
  4. LANTUS [Suspect]
     Dosage: DOSE:100 UNIT(S)
     Route: 058
  5. HUMALOG [Concomitant]

REACTIONS (2)
  - ROAD TRAFFIC ACCIDENT [None]
  - CONCUSSION [None]
